FAERS Safety Report 14685239 (Version 1)
Quarter: 2018Q1

REPORT INFORMATION
  Report Type: Spontaneous
  Country: US (occurrence: US)
  Receive Date: 20180327
  Receipt Date: 20180327
  Transmission Date: 20180509
  Serious: No
  Sender: FDA-Public Use
  Company Number: US-BAYER-2018-051021

PATIENT
  Age: 79 Year
  Sex: Female
  Weight: 59 kg

DRUGS (6)
  1. MIRALAX [Suspect]
     Active Substance: POLYETHYLENE GLYCOL 3350
     Indication: CONSTIPATION
  2. MIRALAX [Suspect]
     Active Substance: POLYETHYLENE GLYCOL 3350
     Indication: GASTROINTESTINAL DISORDER
     Dosage: 1 DF, QD
     Route: 048
     Dates: start: 201709
  3. VITAMIN D [Concomitant]
     Active Substance: CHOLECALCIFEROL
  4. ALPHAGAN P [Concomitant]
     Active Substance: BRIMONIDINE TARTRATE
  5. METAMUCIL [Concomitant]
     Active Substance: PLANTAGO SEED
  6. NORVASC [Concomitant]
     Active Substance: AMLODIPINE BESYLATE

REACTIONS (5)
  - Pulse abnormal [Not Recovered/Not Resolved]
  - Product prescribing issue [Unknown]
  - Balance disorder [Not Recovered/Not Resolved]
  - Malaise [Recovering/Resolving]
  - Incorrect drug administration duration [Unknown]

NARRATIVE: CASE EVENT DATE: 201709
